FAERS Safety Report 23971322 (Version 1)
Quarter: 2024Q2

REPORT INFORMATION
  Report Type: Spontaneous
  Country: SI (occurrence: SI)
  Receive Date: 20240613
  Receipt Date: 20240613
  Transmission Date: 20240716
  Serious: Yes (Other)
  Sender: FDA-Public Use
  Company Number: None

PATIENT
  Age: 78 Year
  Sex: Male

DRUGS (12)
  1. HYDROXYUREA [Suspect]
     Active Substance: HYDROXYUREA
     Indication: Polycythaemia vera
     Dosage: 1X /12H?DAILY DOSE: 1000 MILLIGRAM
     Route: 048
     Dates: start: 20221005
  2. FUROSEMIDE [Concomitant]
     Active Substance: FUROSEMIDE
     Indication: Cardiac failure
     Dosage: 80 MG IN THE MORNING AND 125 MG IN THE AFTERNOON
     Route: 048
  3. DOXAZOSIN MESYLATE [Concomitant]
     Active Substance: DOXAZOSIN MESYLATE
     Indication: Hypertension
     Route: 048
  4. INSULIN ASPART [Concomitant]
     Active Substance: INSULIN ASPART
     Indication: Type 2 diabetes mellitus
     Dosage: STRENGHT: 100 E./ML
     Route: 058
  5. CALCIUM POLYSTYRENE SULFONATE [Concomitant]
     Active Substance: CALCIUM POLYSTYRENE SULFONATE
     Dosage: STRENGHT: 14,96 G/15 G
     Route: 048
  6. CHOLECALCIFEROL [Concomitant]
     Active Substance: CHOLECALCIFEROL
     Indication: Vitamin supplementation
     Dosage: STRENGHT: 4000 I.E./ML
     Route: 048
  7. WARFARIN SODIUM [Concomitant]
     Active Substance: WARFARIN SODIUM
     Indication: Atrial fibrillation
     Dosage: ACCORDING TO THE SCHEME
     Route: 048
  8. Amlopin [Concomitant]
     Indication: Angina pectoris
     Route: 048
  9. Amlopin [Concomitant]
     Indication: Hypertension
     Route: 048
  10. PANTOPRAZOLE SODIUM [Concomitant]
     Active Substance: PANTOPRAZOLE SODIUM
     Indication: Prophylaxis
     Route: 048
  11. NITROLINGUAL [Concomitant]
     Active Substance: NITROGLYCERIN
     Dosage: SUBLINGUAL SPRAY
     Route: 060
  12. ALOPURINOL BELUPO [Concomitant]
     Indication: Hyperuricaemia
     Dosage: 1 TBL IN THE MORNING
     Route: 048

REACTIONS (5)
  - Syncope [Recovered/Resolved]
  - Circulatory collapse [Recovered/Resolved]
  - Leukopenia [Unknown]
  - Haemoglobin decreased [Unknown]
  - Overdose [Unknown]

NARRATIVE: CASE EVENT DATE: 20240518
